FAERS Safety Report 8372593-3 (Version None)
Quarter: 2012Q2

REPORT INFORMATION
  Report Type: 
  Country: None (occurrence: None)
  Receive Date: 20120521
  Receipt Date: 20120516
  Transmission Date: 20120825
  Serious: Yes (Life-Threatening, Hospitalization, Other)
  Sender: FDA-Public Use
  Company Number: PHHY2012AU031645

PATIENT
  Sex: Female

DRUGS (10)
  1. CLOZAPINE [Concomitant]
     Dates: end: 20111101
  2. DOTHIEPIN HYDROCHLORIDE [Concomitant]
     Dosage: 150 MG, DAILY
     Route: 048
  3. ESOMEPRAZOLE MAGNESIUM [Concomitant]
     Dosage: 20 MG, MANE
     Route: 048
  4. YASMIN [Concomitant]
     Dosage: 1 DF, DAILY
  5. CLOZARIL [Suspect]
     Indication: SCHIZOPHRENIA
     Dosage: 500 MG, DAILY
     Route: 048
     Dates: start: 20020502
  6. LITHIUM CARBONATE [Concomitant]
     Dosage: 1125 MG, (450MG MANE AND 675 MG NOCTE)
  7. LEVOTHYROXINE SODIUM [Concomitant]
     Dosage: 75 MG, MANE
     Route: 048
  8. ATORVASTATIN CALCIUM [Concomitant]
     Dosage: 20 MG, NOCTE
     Route: 048
  9. MINOCYCLINE HCL [Concomitant]
     Dosage: 50 MG, BID
     Route: 048
  10. CLONAZEPAM [Concomitant]
     Dosage: 3 MG, (1 MG MANE, 2 MG NOCTE)
     Route: 048

REACTIONS (9)
  - MUSCLE SPASMS [None]
  - TENDERNESS [None]
  - CHEST PAIN [None]
  - SOMNOLENCE [None]
  - DYSPNOEA [None]
  - PAIN [None]
  - SWELLING [None]
  - PULMONARY EMBOLISM [None]
  - TACHYCARDIA [None]
